FAERS Safety Report 6180570-6 (Version None)
Quarter: 2009Q2

REPORT INFORMATION
  Report Type: 
  Country: None (occurrence: None)
  Receive Date: 20090504
  Receipt Date: 20090504
  Transmission Date: 20091009
  Serious: Yes (Disabling)
  Sender: FDA-Public Use
  Company Number: None

PATIENT
  Age: 60 Year
  Sex: Female
  Weight: 54.4316 kg

DRUGS (1)
  1. TYSABRI [Suspect]
     Indication: MULTIPLE SCLEROSIS
     Dosage: 1 MONTHLY INTRAVENO
     Route: 042
     Dates: start: 20090105, end: 20090105

REACTIONS (8)
  - APHASIA [None]
  - GLOSSITIS [None]
  - GLOSSODYNIA [None]
  - HERPES ZOSTER [None]
  - ORAL PAIN [None]
  - STAPHYLOCOCCAL INFECTION [None]
  - STOMATITIS [None]
  - TRIGEMINAL NEURALGIA [None]
